FAERS Safety Report 10361692 (Version 1)
Quarter: 2014Q3

REPORT INFORMATION
  Report Type: Spontaneous
  Country: DE (occurrence: DE)
  Receive Date: 20140805
  Receipt Date: 20140805
  Transmission Date: 20150326
  Serious: Yes (Other)
  Sender: FDA-Public Use
  Company Number: DE-DRREDDYS-GER/GER/14/0042151

PATIENT
  Age: 39 Year
  Sex: Female
  Weight: 131 kg

DRUGS (5)
  1. BASALINSULIN [Concomitant]
     Indication: GESTATIONAL DIABETES
     Route: 058
     Dates: start: 20130327, end: 20130627
  2. FEMIBION SCHWANGERSCHAFT 1 [Concomitant]
     Indication: PROPHYLAXIS OF NEURAL TUBE DEFECT
     Route: 048
     Dates: start: 20121005, end: 20130327
  3. VIGANTOLETTEN [Concomitant]
     Active Substance: CHOLECALCIFEROL
     Indication: VITAMIN D DEFICIENCY
     Route: 048
     Dates: start: 20121005, end: 20130627
  4. METFORMIN [Suspect]
     Active Substance: METFORMIN HYDROCHLORIDE
     Indication: POLYCYSTIC OVARIES
     Route: 048
     Dates: start: 20121005, end: 20130627
  5. RENNIE [Concomitant]
     Active Substance: MAGNESIUM CARBONATE
     Indication: DYSPEPSIA
     Dosage: 3400 MG/DAY / 400 MG/DAY ON DEMAND
     Route: 048
     Dates: end: 20130627

REACTIONS (3)
  - Exposure during pregnancy [Unknown]
  - Dyspepsia [Unknown]
  - Caesarean section [Unknown]
